FAERS Safety Report 9133368 (Version 2)
Quarter: 2013Q1

REPORT INFORMATION
  Report Type: Spontaneous
  Country: US (occurrence: US)
  Receive Date: 20130301
  Receipt Date: 20130329
  Transmission Date: 20140127
  Serious: Yes (Life-Threatening, Hospitalization, Other)
  Sender: FDA-Public Use
  Company Number: US-009507513-1302USA012964

PATIENT
  Age: 84 Year
  Sex: Male

DRUGS (2)
  1. INTEGRILIN [Suspect]
     Dosage: RATE OF 8 CC?S PER HOUR
     Route: 042
     Dates: start: 20130219, end: 20130225
  2. ASPIRIN [Concomitant]

REACTIONS (3)
  - Rectal haemorrhage [Recovered/Resolved]
  - Gastrointestinal haemorrhage [Recovered/Resolved]
  - Incorrect drug administration duration [Unknown]
